FAERS Safety Report 8126097-3 (Version None)
Quarter: 2012Q1

REPORT INFORMATION
  Report Type: 
  Country: None (occurrence: None)
  Receive Date: 20120209
  Receipt Date: 20120201
  Transmission Date: 20120608
  Serious: Yes (Hospitalization, Other)
  Sender: FDA-Public Use
  Company Number: PHHY2012DE005211

PATIENT
  Sex: Male
  Weight: 124 kg

DRUGS (17)
  1. ASPIRIN [Concomitant]
     Indication: PLATELET AGGREGATION
     Dosage: 100 MG, PER DAY
     Route: 048
     Dates: start: 20080605
  2. RASILEZ [Suspect]
     Indication: HYPERTENSION
     Dosage: 300 MG, PER DAY
     Route: 048
     Dates: start: 20090122, end: 20111208
  3. EXFORGE HCT [Suspect]
     Dosage: 1 DF, (320/10/25 MG PER DAY)
     Route: 048
     Dates: start: 20111208
  4. BYETTA [Concomitant]
     Indication: DIABETES MELLITUS
     Dosage: 20 UG, PER DAY
     Route: 058
     Dates: start: 20110715
  5. INSPRA [Concomitant]
     Route: 048
     Dates: start: 20080605, end: 20100218
  6. SYMBICORT [Concomitant]
     Indication: CHRONIC OBSTRUCTIVE PULMONARY DISEASE
     Dosage: 1 DF, (80/4.5 UG PER DAY)
     Dates: start: 20101115
  7. TORSEMIDE [Concomitant]
     Dates: start: 20110715, end: 20111218
  8. EXFORGE HCT [Suspect]
     Indication: HYPERTENSION
     Dosage: 1 DF, (320/10/25 MG PER DAY)
     Route: 048
     Dates: start: 20091217, end: 20100218
  9. VOCADO [Concomitant]
     Dosage: 1 DF (20/5 MG PER DAY)
     Route: 048
     Dates: start: 20101125, end: 20111208
  10. CITALOPRAM HYDROBROMIDE [Concomitant]
     Route: 048
     Dates: start: 20090910, end: 20101125
  11. AMLODIPINE [Concomitant]
     Indication: HYPERTENSION
     Route: 048
     Dates: start: 20101125, end: 20111208
  12. TORSEMIDE [Concomitant]
     Dates: start: 20110607, end: 20110714
  13. METOCLOPRAMIDE [Concomitant]
     Indication: HYPERTENSION
     Dosage: 1 DF, BID
     Route: 048
     Dates: start: 20111208
  14. MINOXIDIL [Concomitant]
     Route: 048
     Dates: start: 20091122, end: 20100910
  15. PIOGLITAZONE HYDROCHLORIDE/METFORMIN HYDROCHLORIDE [Concomitant]
     Indication: DIABETES MELLITUS
     Dosage: 1 DF, BID
     Route: 048
     Dates: start: 20080626
  16. SIMVASTATIN [Concomitant]
     Indication: BLOOD CHOLESTEROL
     Dosage: 1 DF, QD
     Route: 048
     Dates: start: 20111208
  17. TORSEMIDE [Concomitant]
     Dates: start: 20091217, end: 20100218

REACTIONS (4)
  - RENAL CYST [None]
  - BLOOD GLUCOSE DECREASED [None]
  - CREATININE URINE INCREASED [None]
  - BLOOD GLUCOSE INCREASED [None]
